FAERS Safety Report 11143592 (Version 1)
Quarter: 2015Q2

REPORT INFORMATION
  Report Type: Spontaneous
  Country: US (occurrence: None)
  Receive Date: 20150527
  Receipt Date: 20150527
  Transmission Date: 20150821
  Serious: Yes (Death, Hospitalization)
  Sender: FDA-Public Use
  Company Number: None

PATIENT
  Age: 9 Year
  Sex: Male
  Weight: 24.2 kg

DRUGS (2)
  1. IRINOTECAN (CPT-45MG 11, CAMPTOSAR) [Suspect]
     Active Substance: IRINOTECAN HYDROCHLORIDE
     Indication: BONE MARROW FAILURE
     Dates: start: 20150127, end: 20150421
  2. TEMOZOLOMIDE 65 MG [Suspect]
     Active Substance: TEMOZOLOMIDE
     Indication: BONE MARROW FAILURE
     Dates: start: 20150127, end: 20150421

REACTIONS (3)
  - Status epilepticus [None]
  - Disease progression [None]
  - Neurological decompensation [None]

NARRATIVE: CASE EVENT DATE: 20150515
